FAERS Safety Report 18344709 (Version 1)
Quarter: 2020Q4

REPORT INFORMATION
  Report Type: Spontaneous
  Country: IT (occurrence: IT)
  Receive Date: 20201005
  Receipt Date: 20201005
  Transmission Date: 20210114
  Serious: Yes (Other)
  Sender: FDA-Public Use
  Company Number: IT-TEVA-2020-IT-1834728

PATIENT
  Age: 59 Year
  Sex: Female

DRUGS (6)
  1. HUMIRA [Suspect]
     Active Substance: ADALIMUMAB
     Indication: SPONDYLITIS
     Dosage: 40MILLIGRAM
     Route: 058
     Dates: start: 20140418, end: 20200325
  2. ALGIX [Concomitant]
     Active Substance: ETORICOXIB
  3. PREGABALIN. [Concomitant]
     Active Substance: PREGABALIN
  4. DIBASE [Concomitant]
     Active Substance: CHOLECALCIFEROL
  5. METHOTREXATE. [Suspect]
     Active Substance: METHOTREXATE
     Indication: SPONDYLITIS
     Dosage: 10MILLIGRAM
     Route: 030
     Dates: start: 20140819, end: 20200325
  6. FOLINA [Concomitant]

REACTIONS (4)
  - Malaise [Recovered/Resolved]
  - Asthenia [Recovered/Resolved]
  - COVID-19 [Recovered/Resolved]
  - Pyrexia [Recovered/Resolved]

NARRATIVE: CASE EVENT DATE: 20200325
